FAERS Safety Report 5664208-X (Version None)
Quarter: 2008Q1

REPORT INFORMATION
  Report Type: 
  Country: None (occurrence: None)
  Receive Date: 20080314
  Receipt Date: 20080306
  Transmission Date: 20080703
  Serious: Yes (Other)
  Sender: FDA-Public Use
  Company Number: US-ROCHE-551724

PATIENT
  Age: 16 Year
  Sex: Female

DRUGS (2)
  1. TAMIFLU [Suspect]
     Dosage: INDICATION REPORTED AS SYMPTOMS OF FLU: HEADCAHES/BODY ACHES
     Route: 065
     Dates: start: 20080218, end: 20080222
  2. HISTINEX [Concomitant]
     Indication: COUGH
     Dosage: AT THE BEGINNING OF COUGH

REACTIONS (4)
  - ABNORMAL BEHAVIOUR [None]
  - AMNESIA [None]
  - MEMORY IMPAIRMENT [None]
  - SOMNOLENCE [None]
